FAERS Safety Report 4531889-3 (Version None)
Quarter: 2004Q4

REPORT INFORMATION
  Report Type: 
  Country: None (occurrence: None)
  Receive Date: 20041220
  Receipt Date: 20040802
  Transmission Date: 20050328
  Serious: No
  Sender: FDA-Public Use
  Company Number: US-GLAXOSMITHKLINE-A0520528A

PATIENT
  Age: 44 Year
  Sex: Male

DRUGS (1)
  1. TRIZIVIR [Suspect]
     Indication: ILL-DEFINED DISORDER
     Dosage: 1TAB TWICE PER DAY
     Route: 048

REACTIONS (1)
  - ADVERSE EVENT [None]
